FAERS Safety Report 8576448-0 (Version None)
Quarter: 2012Q3

REPORT INFORMATION
  Report Type: 
  Country: None (occurrence: None)
  Receive Date: 20120807
  Receipt Date: 20111130
  Transmission Date: 20120928
  Serious: Yes (Death, Other)
  Sender: FDA-Public Use
  Company Number: DE-CELGENEUS-062-50794-12052697

PATIENT
  Age: 88 Year
  Sex: Male
  Weight: 81 kg

DRUGS (6)
  1. RED BLOOD CELLS [Concomitant]
     Route: 065
     Dates: start: 20110308
  2. VIDAZA [Suspect]
     Route: 058
     Dates: start: 20110121, end: 20110405
  3. RED BLOOD CELLS [Concomitant]
     Route: 065
     Dates: start: 20110329
  4. RED BLOOD CELLS [Concomitant]
     Route: 065
     Dates: start: 20110415
  5. RED BLOOD CELLS [Concomitant]
     Route: 065
     Dates: start: 20110303
  6. EPOETIN [Concomitant]
     Route: 065
     Dates: start: 20110126

REACTIONS (6)
  - GENERAL PHYSICAL HEALTH DETERIORATION [None]
  - ASTHENIA [None]
  - WHITE BLOOD CELL COUNT DECREASED [None]
  - DEATH [None]
  - HAEMOGLOBIN DECREASED [None]
  - PLATELET COUNT DECREASED [None]
